FAERS Safety Report 24869787 (Version 1)
Quarter: 2025Q1

REPORT INFORMATION
  Report Type: Spontaneous
  Country: MX (occurrence: None)
  Receive Date: 20250119
  Receipt Date: 20250119
  Transmission Date: 20250409
  Serious: Yes (Other)
  Sender: FDA-CTU
  Company Number: None

PATIENT
  Age: 46 Year
  Sex: Female
  Weight: 67 kg

DRUGS (6)
  1. CALCIUM DOBESILATE\DEXAMETHASONE ACETATE\LIDOCAINE HYDROCHLORIDE [Suspect]
     Active Substance: CALCIUM DOBESILATE\DEXAMETHASONE ACETATE\LIDOCAINE HYDROCHLORIDE
     Indication: Anal fissure
     Dosage: OTHER QUANTITY : 1 1 TUBO;?FREQUENCY : 3 TIMES A DAY;?
     Route: 054
     Dates: start: 20250110, end: 20250117
  2. CALCIUM DOBESILATE\DEXAMETHASONE ACETATE\LIDOCAINE HYDROCHLORIDE [Suspect]
     Active Substance: CALCIUM DOBESILATE\DEXAMETHASONE ACETATE\LIDOCAINE HYDROCHLORIDE
     Indication: Haemorrhoids
  3. KETOROLAC [Concomitant]
     Active Substance: KETOROLAC TROMETHAMINE
  4. TRAMADOL [Concomitant]
     Active Substance: TRAMADOL
  5. SERRAPEPTASE [Concomitant]
     Active Substance: SERRAPEPTASE
  6. ACETAMINOPHEN\NAPROXEN [Concomitant]
     Active Substance: ACETAMINOPHEN\NAPROXEN

REACTIONS (2)
  - Application site irritation [None]
  - Application site rash [None]

NARRATIVE: CASE EVENT DATE: 20250116
